FAERS Safety Report 13239984 (Version 4)
Quarter: 2018Q1

REPORT INFORMATION
  Report Type: Spontaneous
  Country: US (occurrence: US)
  Receive Date: 20170216
  Receipt Date: 20180222
  Transmission Date: 20180508
  Serious: No
  Sender: FDA-Public Use
  Company Number: US-PFIZER INC-2017070441

PATIENT
  Age: 75 Year
  Sex: Female
  Weight: 109 kg

DRUGS (6)
  1. IBRANCE [Suspect]
     Active Substance: PALBOCICLIB
     Dosage: 125 MG, CYCLIC (ONCE DAILY FOR 21 DAYS, THEN OFF FOR 1 WEEK)
     Dates: start: 20170104, end: 20170124
  2. IBRANCE [Suspect]
     Active Substance: PALBOCICLIB
     Indication: TUMOUR MARKER ABNORMAL
     Dosage: 125 MG, CYCLIC, (ONCE DAILY FOR 21 DAYS, THEN OFF FOR 1 WEEK)
     Dates: start: 20160914, end: 20161004
  3. IBRANCE [Suspect]
     Active Substance: PALBOCICLIB
     Dosage: 125 MG, CYCLIC (ONCE DAILY FOR 21 DAYS, THEN OFF FOR 1 WEEK)
     Dates: start: 20161026, end: 20161115
  4. PROCHLORPERAZINE. [Concomitant]
     Active Substance: PROCHLORPERAZINE
     Indication: PROPHYLAXIS OF NAUSEA AND VOMITING
     Dosage: 10 MG, 1X/DAY (1 HOUR BEFORE TAKING THE IBRANCE)
  5. IBRANCE [Suspect]
     Active Substance: PALBOCICLIB
     Dosage: 125 MG, CYCLIC (ONCE DAILY FOR 21 DAYS, THEN OFF FOR 1 WEEK)
     Dates: start: 20161125, end: 20161215
  6. LISINOPRIL. [Concomitant]
     Active Substance: LISINOPRIL
     Indication: HYPERTENSION
     Dosage: 10 MG, 1X/DAY

REACTIONS (5)
  - Neoplasm progression [Unknown]
  - Muscle spasms [Unknown]
  - White blood cell count decreased [Not Recovered/Not Resolved]
  - Dysphagia [Unknown]
  - Visual impairment [Unknown]
